FAERS Safety Report 9366207 (Version 1)
Quarter: 2013Q2

REPORT INFORMATION
  Report Type: Spontaneous
  Country: CN (occurrence: CN)
  Receive Date: 20130625
  Receipt Date: 20130625
  Transmission Date: 20140414
  Serious: Yes (Other)
  Sender: FDA-Public Use
  Company Number: US-ASTELLAS-2013US006528

PATIENT
  Age: 52 Year
  Sex: Female

DRUGS (2)
  1. TARCEVA [Suspect]
     Indication: LUNG ADENOCARCINOMA
     Dosage: 150 MG, UID/QD
     Route: 048
     Dates: start: 20130604
  2. AMINOPHYLLINE [Concomitant]
     Indication: ASTHMA
     Dosage: UNK
     Route: 041

REACTIONS (3)
  - Vision blurred [Not Recovered/Not Resolved]
  - Oral pain [Unknown]
  - Eating disorder [Unknown]
